FAERS Safety Report 8379949-3 (Version None)
Quarter: 2012Q1

REPORT INFORMATION
  Report Type: 
  Country: None (occurrence: None)
  Receive Date: 20120323
  Receipt Date: 20110307
  Transmission Date: 20120608
  Serious: Yes (Other)
  Sender: FDA-Public Use
  Company Number: 163-21880-11030954

PATIENT
  Age: 57 Year
  Sex: Female

DRUGS (6)
  1. VICODIN [Concomitant]
  2. REVLIMID [Suspect]
     Indication: BREAST CANCER IN SITU
     Dosage: 25 MG, X 21 DAYS, PO
     Route: 048
     Dates: start: 20100727
  3. ATIVAN [Concomitant]
  4. RESTORIL [Concomitant]
  5. ASPIRIN [Concomitant]
  6. BACTRIM [Concomitant]

REACTIONS (1)
  - STAPHYLOCOCCAL INFECTION [None]
